FAERS Safety Report 5364076-X (Version None)
Quarter: 2007Q2

REPORT INFORMATION
  Report Type: 
  Country: None (occurrence: None)
  Receive Date: 20070620
  Receipt Date: 20070611
  Transmission Date: 20071010
  Serious: Yes (Other)
  Sender: FDA-Public Use
  Company Number: BR-PFIZER INC-2007045310

PATIENT
  Sex: Female

DRUGS (1)
  1. DETRUSITOL [Suspect]
     Indication: URINARY INCONTINENCE
     Route: 048
     Dates: start: 20070201, end: 20070201

REACTIONS (3)
  - DIZZINESS [None]
  - HYPERSENSITIVITY [None]
  - VOMITING [None]
